FAERS Safety Report 5221921-6 (Version None)
Quarter: 2007Q1

REPORT INFORMATION
  Report Type: 
  Country: None (occurrence: None)
  Receive Date: 20070129
  Receipt Date: 20060103
  Transmission Date: 20070707
  Serious: Yes (Other)
  Sender: FDA-Public Use
  Company Number: CHPA2005US08389

PATIENT
  Age: 62 Year
  Sex: Male
  Weight: 75 kg

DRUGS (2)
  1. WELLBUTRIN [Suspect]
     Indication: DEPRESSION
     Route: 048
  2. PERDIEM [Suspect]
     Indication: BOWEL MOVEMENT IRREGULARITY
     Dosage: 30MG AT NIGHT
     Route: 048
     Dates: start: 20020101

REACTIONS (2)
  - CONSTIPATION [None]
  - DRUG ABUSER [None]
